FAERS Safety Report 5827674-2 (Version None)
Quarter: 2008Q3

REPORT INFORMATION
  Report Type: 
  Country: None (occurrence: None)
  Receive Date: 20080730
  Receipt Date: 20080721
  Transmission Date: 20090109
  Serious: Yes (Hospitalization, Other)
  Sender: FDA-Public Use
  Company Number: US-ABBOTT-08P-163-0464532-00

PATIENT
  Sex: Female
  Weight: 61.29 kg

DRUGS (13)
  1. HUMIRA [Suspect]
     Indication: CROHN'S DISEASE
     Route: 058
     Dates: start: 20080301, end: 20080301
  2. HUMIRA [Suspect]
     Route: 058
  3. HUMIRA [Suspect]
     Route: 058
  4. HYDROXYCHLOROQUINE SULFATE [Concomitant]
     Indication: INFLAMMATION
     Dosage: ONE DAILY
     Route: 048
  5. PREDNISONE [Concomitant]
     Indication: CROHN'S DISEASE
     Route: 048
  6. JUNIVA [Concomitant]
     Indication: DIABETES MELLITUS
     Dosage: ONE DAILY
     Route: 048
  7. ALEXITOL SODIUM [Concomitant]
     Indication: DRUG USE FOR UNKNOWN INDICATION
     Route: 048
  8. AZATHIOPRINE [Concomitant]
     Indication: CROHN'S DISEASE
     Dosage: ONE AND ONE HALF PILL DAILY
  9. ROSUVASTATIN CALCIUM [Concomitant]
     Indication: BLOOD CHOLESTEROL INCREASED
     Dosage: AT BEDTIME
     Route: 048
  10. AZTHIOTHRINE [Concomitant]
     Indication: CROHN'S DISEASE
     Dosage: ONE AND ONE-HALF DAILY
     Route: 048
  11. CITRACAL + D [Concomitant]
     Indication: VITAMIN SUPPLEMENTATION
     Route: 048
  12. RISEDRONATE SODIUM [Concomitant]
     Indication: OSTEOPOROSIS
  13. KAPSOVIT [Concomitant]
     Indication: VITAMIN SUPPLEMENTATION
     Route: 048

REACTIONS (3)
  - FALL [None]
  - HIP FRACTURE [None]
  - SKIN LACERATION [None]
